FAERS Safety Report 12462453 (Version 1)
Quarter: 2016Q2

REPORT INFORMATION
  Report Type: Spontaneous
  Country: US (occurrence: US)
  Receive Date: 20160614
  Receipt Date: 20160614
  Transmission Date: 20160815
  Serious: No
  Sender: FDA-Public Use
  Company Number: US-ACCORD-035143

PATIENT
  Age: 45 Year
  Sex: Male

DRUGS (3)
  1. CLONAZEPAM ACCORD [Suspect]
     Active Substance: CLONAZEPAM
     Indication: ANXIETY DISORDER
     Dosage: STRENGTH: 1 MG
     Route: 048
  2. RISPERIDONE. [Concomitant]
     Active Substance: RISPERIDONE
  3. DEPAKOTE [Concomitant]
     Active Substance: DIVALPROEX SODIUM

REACTIONS (3)
  - Product substitution issue [Unknown]
  - Treatment noncompliance [Unknown]
  - No therapeutic response [Not Recovered/Not Resolved]
